FAERS Safety Report 21856862 (Version 1)
Quarter: 2023Q1

REPORT INFORMATION
  Report Type: Spontaneous
  Country: DE (occurrence: DE)
  Receive Date: 20230113
  Receipt Date: 20230113
  Transmission Date: 20230418
  Serious: Yes (Other)
  Sender: FDA-Public Use
  Company Number: None

PATIENT
  Sex: Male

DRUGS (1)
  1. PREGABALIN [Suspect]
     Active Substance: PREGABALIN
     Indication: Nerve injury
     Dosage: UNK (CAPSULE, HARD)
     Route: 065

REACTIONS (4)
  - Pneumothorax [Unknown]
  - Somnolence [Unknown]
  - Body temperature decreased [Unknown]
  - Feeling cold [Unknown]
